FAERS Safety Report 15790841 (Version 6)
Quarter: 2019Q2

REPORT INFORMATION
  Report Type: Report from Study
  Country: US (occurrence: US)
  Receive Date: 20190104
  Receipt Date: 20190603
  Transmission Date: 20190711
  Serious: Yes (Death, Hospitalization)
  Sender: FDA-Public Use
  Company Number: US-ACTELION-A-NJ2018-172481

PATIENT
  Age: 59 Year
  Sex: Female
  Weight: 68.48 kg

DRUGS (3)
  1. SILDENAFIL CITRATE. [Concomitant]
     Active Substance: SILDENAFIL CITRATE
  2. OPSUMIT [Suspect]
     Active Substance: MACITENTAN
     Indication: PULMONARY ARTERIAL HYPERTENSION
     Dosage: 10 MG, QD
     Route: 048
     Dates: start: 20180628
  3. REMODULIN [Concomitant]
     Active Substance: TREPROSTINIL

REACTIONS (10)
  - Hemiplegia [Unknown]
  - Cardiac failure congestive [Unknown]
  - Fluid overload [Unknown]
  - Malaise [Unknown]
  - Pulmonary hypertension [Unknown]
  - Rehabilitation therapy [Unknown]
  - Death [Fatal]
  - Hospitalisation [Unknown]
  - Cerebrovascular accident [Unknown]
  - Tooth infection [Unknown]

NARRATIVE: CASE EVENT DATE: 20190417
